FAERS Safety Report 12285004 (Version 3)
Quarter: 2016Q2

REPORT INFORMATION
  Report Type: Report from Study
  Country: US (occurrence: US)
  Receive Date: 20160420
  Receipt Date: 20160526
  Transmission Date: 20160815
  Serious: No
  Sender: FDA-Public Use
  Company Number: US-AMGEN-USASL2016048498

PATIENT
  Age: 54 Year
  Sex: Female

DRUGS (2)
  1. ENBREL [Suspect]
     Active Substance: ETANERCEPT
     Dosage: UNK
     Route: 065
  2. ENBREL [Suspect]
     Active Substance: ETANERCEPT
     Indication: PSORIASIS
     Dosage: 50 MG, TWICE WEEKLY
     Route: 065
     Dates: start: 20160331

REACTIONS (6)
  - Injection site erythema [Unknown]
  - Condition aggravated [Unknown]
  - Device leakage [Unknown]
  - Injection site extravasation [Unknown]
  - Underdose [Unknown]
  - Sinus headache [Unknown]

NARRATIVE: CASE EVENT DATE: 2016
